FAERS Safety Report 6287240-4 (Version None)
Quarter: 2009Q3

REPORT INFORMATION
  Report Type: 
  Country: None (occurrence: None)
  Receive Date: 20090728
  Receipt Date: 20090715
  Transmission Date: 20100115
  Serious: Yes (Other)
  Sender: FDA-Public Use
  Company Number: PHEH2008US00459

PATIENT
  Sex: Female

DRUGS (3)
  1. AREDIA [Suspect]
     Dosage: 30 MG, UNK
  2. ZOMETA [Suspect]
     Dosage: 4 MG, UNK
  3. ZOMETA [Suspect]
     Dosage: 1 MG, UNK

REACTIONS (10)
  - ANHEDONIA [None]
  - ANXIETY [None]
  - ENDODONTIC PROCEDURE [None]
  - INJURY [None]
  - OSTEOMYELITIS [None]
  - OSTEONECROSIS [None]
  - PAIN [None]
  - SEQUESTRECTOMY [None]
  - TOOTH EXTRACTION [None]
  - TOOTHACHE [None]
